FAERS Safety Report 8461253-6 (Version None)
Quarter: 2012Q2

REPORT INFORMATION
  Report Type: 
  Country: None (occurrence: None)
  Receive Date: 20120323
  Receipt Date: 20111019
  Transmission Date: 20120825
  Serious: Yes (Hospitalization)
  Sender: FDA-Public Use
  Company Number: 163-21880-11102365

PATIENT
  Age: 48 Year
  Sex: Male

DRUGS (4)
  1. REVLIMID [Suspect]
     Indication: MULTIPLE MYELOMA
     Dosage: 10 MG, 1 IN 1 D, PO; 10 MG, 1 IN 1 D PO; 10 MG, 1 IN 1 D, PO; 10 MG, QD X 21/28 DAYS, PO
     Route: 048
     Dates: start: 20100601
  2. REVLIMID [Suspect]
     Indication: MULTIPLE MYELOMA
     Dosage: 10 MG, 1 IN 1 D, PO; 10 MG, 1 IN 1 D PO; 10 MG, 1 IN 1 D, PO; 10 MG, QD X 21/28 DAYS, PO
     Route: 048
     Dates: start: 20110201
  3. REVLIMID [Suspect]
     Indication: MULTIPLE MYELOMA
     Dosage: 10 MG, 1 IN 1 D, PO; 10 MG, 1 IN 1 D PO; 10 MG, 1 IN 1 D, PO; 10 MG, QD X 21/28 DAYS, PO
     Route: 048
     Dates: start: 20091001
  4. REVLIMID [Suspect]
     Indication: MULTIPLE MYELOMA
     Dosage: 10 MG, 1 IN 1 D, PO; 10 MG, 1 IN 1 D PO; 10 MG, 1 IN 1 D, PO; 10 MG, QD X 21/28 DAYS, PO
     Route: 048
     Dates: start: 20110925, end: 20110927

REACTIONS (3)
  - FOOT FRACTURE [None]
  - CONTUSION [None]
  - FALL [None]
